FAERS Safety Report 18956523 (Version 2)
Quarter: 2021Q1

REPORT INFORMATION
  Report Type: Report from Study
  Country: JP (occurrence: JP)
  Receive Date: 20210302
  Receipt Date: 20210317
  Transmission Date: 20210420
  Serious: Yes (Congenital Anomaly, Other)
  Sender: FDA-Public Use
  Company Number: JP-SUN PHARMACEUTICAL INDUSTRIES LTD-2021RR-283118

PATIENT
  Sex: Male

DRUGS (2)
  1. E KEPPRA [Suspect]
     Active Substance: LEVETIRACETAM
     Indication: EPILEPSY
     Dosage: 2000 MILLIGRAM, DAILY
     Route: 064
  2. TEGRETOL [Suspect]
     Active Substance: CARBAMAZEPINE
     Indication: EPILEPSY
     Dosage: 200MG IN THE MORNING, 400MG IN THE EVENING
     Route: 064

REACTIONS (6)
  - Aplasia [Unknown]
  - Drug withdrawal syndrome neonatal [Recovering/Resolving]
  - Dysplasia [Unknown]
  - Congenital nail disorder [Not Recovered/Not Resolved]
  - Foetal exposure during pregnancy [Unknown]
  - Low birth weight baby [Unknown]
